FAERS Safety Report 9941250 (Version 1)
Quarter: 2014Q1

REPORT INFORMATION
  Report Type: Report from Study
  Country: US (occurrence: US)
  Receive Date: 20140303
  Receipt Date: 20140303
  Transmission Date: 20141002
  Serious: No
  Sender: FDA-Public Use
  Company Number: US-ABBVIE-13P-163-1041880-00

PATIENT
  Age: 56 Year
  Sex: Male

DRUGS (12)
  1. HUMIRA [Suspect]
     Indication: CROHN^S DISEASE
     Dosage: STARTER DOSE
     Dates: start: 20130122
  2. ADVAIR [Concomitant]
     Indication: PRODUCT USED FOR UNKNOWN INDICATION
     Dosage: 500/50 MG
  3. FLUTICASONE [Concomitant]
     Indication: ASTHMA
     Route: 045
  4. ALBUTEROL NEBULIZER [Concomitant]
     Indication: ASTHMA
  5. NEXIUM [Concomitant]
     Indication: GASTROOESOPHAGEAL REFLUX DISEASE
  6. ZYRTEC [Concomitant]
     Indication: HYPERSENSITIVITY
     Route: 048
  7. MERCAPTOPURINE [Concomitant]
     Indication: PRODUCT USED FOR UNKNOWN INDICATION
  8. COLAZAL [Concomitant]
     Indication: CROHN^S DISEASE
     Dosage: 3 CAPS 3 TIMES DAILY
  9. WELCHOL [Concomitant]
     Indication: DIARRHOEA
     Dosage: 3 TABS TWICE DAILY
  10. SINGULAIR [Concomitant]
     Indication: ASTHMA
     Route: 048
  11. LOMOTIL [Concomitant]
     Indication: DIARRHOEA
  12. DONNATAL [Concomitant]
     Indication: PRODUCT USED FOR UNKNOWN INDICATION

REACTIONS (1)
  - Injection site pain [Recovered/Resolved]
